FAERS Safety Report 10214093 (Version 1)
Quarter: 2014Q2

REPORT INFORMATION
  Report Type: Spontaneous
  Country: US (occurrence: None)
  Receive Date: 20140602
  Receipt Date: 20140602
  Transmission Date: 20141212
  Serious: No
  Sender: FDA-Public Use
  Company Number: None

PATIENT
  Age: 83 Year
  Sex: Female
  Weight: 31.75 kg

DRUGS (2)
  1. RECLAST INFUSION [Suspect]
     Indication: OSTEOPOROSIS
     Dosage: INFUSION
     Dates: start: 20140115, end: 20140115
  2. VIT. D, FOLIC ACID, VIT. B - COMPLEX [Concomitant]

REACTIONS (6)
  - Malaise [None]
  - Hip fracture [None]
  - Femur fracture [None]
  - Fall [None]
  - Malaise [None]
  - Laziness [None]
